FAERS Safety Report 8140797-0 (Version None)
Quarter: 2012Q1

REPORT INFORMATION
  Report Type: 
  Country: None (occurrence: None)
  Receive Date: 20120216
  Receipt Date: 20120203
  Transmission Date: 20120608
  Serious: No
  Sender: FDA-Public Use
  Company Number: JP-UCBSA-040714

PATIENT
  Age: 71 Year
  Sex: Male
  Weight: 65 kg

DRUGS (3)
  1. KEPPRA [Suspect]
     Indication: EPILEPSY
     Route: 048
     Dates: start: 20110826
  2. PHENYTOIN SODIUM CAP [Concomitant]
     Dosage: 250 MG X 1
  3. DEPAKENE [Concomitant]
     Indication: EPILEPSY
     Route: 048
     Dates: start: 20090904

REACTIONS (4)
  - WHITE BLOOD CELL COUNT DECREASED [None]
  - ANAEMIA [None]
  - ANTICONVULSANT DRUG LEVEL DECREASED [None]
  - PLATELET COUNT DECREASED [None]
